FAERS Safety Report 4689482-8 (Version None)
Quarter: 2005Q2

REPORT INFORMATION
  Report Type: 
  Country: None (occurrence: None)
  Receive Date: 20050613
  Receipt Date: 20050613
  Transmission Date: 20051028
  Serious: Yes (Other)
  Sender: FDA-Public Use
  Company Number: None

PATIENT
  Sex: Male
  Weight: 64.5 kg

DRUGS (2)
  1. PACLITAXEL [Suspect]
     Indication: NON-SMALL CELL LUNG CANCER
     Dosage: 200 MG/M2 IV OVER 3HR ON DAYS 1, EVERY 21 DAYS X 6 CYCLES
     Route: 042
     Dates: start: 20031013
  2. CARBOPLATIN [Suspect]
     Indication: NON-SMALL CELL LUNG CANCER
     Dosage: AUC = 6 IV OVER 15-30 MIN ON DAY 1, EVERY 21 DAYS X 6 CYCLES
     Route: 042
     Dates: start: 20031013

REACTIONS (6)
  - ACUTE RESPIRATORY DISTRESS SYNDROME [None]
  - HYPOTENSION [None]
  - LOBAR PNEUMONIA [None]
  - NEUTROPHIL COUNT DECREASED [None]
  - RENAL FAILURE ACUTE [None]
  - SEPSIS SYNDROME [None]
